FAERS Safety Report 8056264-9 (Version None)
Quarter: 2012Q1

REPORT INFORMATION
  Report Type: 
  Country: None (occurrence: None)
  Receive Date: 20120112
  Receipt Date: 20120106
  Transmission Date: 20120608
  Serious: Yes (Other)
  Sender: FDA-Public Use
  Company Number: USA/USA/12/0022587

PATIENT
  Sex: Female

DRUGS (1)
  1. CLODERM CREAM 0.1% (CLOCORTOLONE PIVALATE) [Suspect]
     Indication: PRODUCT USED FOR UNKNOWN INDICATION
     Dosage: UNKNOWN, TOPICAL
     Route: 061
     Dates: start: 20111231

REACTIONS (8)
  - BURNING SENSATION MUCOSAL [None]
  - PHOTOPHOBIA [None]
  - EYE PRURITUS [None]
  - OCULAR HYPERAEMIA [None]
  - EYE IRRITATION [None]
  - VISUAL IMPAIRMENT [None]
  - BREATH ODOUR [None]
  - EYE PAIN [None]
